FAERS Safety Report 17163390 (Version 1)
Quarter: 2019Q4

REPORT INFORMATION
  Report Type: Spontaneous
  Country: GB (occurrence: GB)
  Receive Date: 20191217
  Receipt Date: 20191217
  Transmission Date: 20200122
  Serious: Yes (Other)
  Sender: FDA-Public Use
  Company Number: GB-ACCORD-165199

PATIENT
  Age: 5 Year
  Sex: Male
  Weight: 22 kg

DRUGS (3)
  1. METHOTREXATE. [Suspect]
     Active Substance: METHOTREXATE
     Indication: PRODUCT USED FOR UNKNOWN INDICATION
     Route: 037
     Dates: start: 20191118, end: 20191118
  2. COTRIMOXAZOLE [Concomitant]
     Active Substance: SULFAMETHOXAZOLE\TRIMETHOPRIM
  3. MERCAPTOPURINE/MERCAPTOPURINE ANHYDROUS [Concomitant]
     Active Substance: MERCAPTOPURINE

REACTIONS (3)
  - Headache [Recovered/Resolved]
  - Seizure [Recovered/Resolved]
  - Dyskinesia [Unknown]
